FAERS Safety Report 6456426-8 (Version None)
Quarter: 2009Q4

REPORT INFORMATION
  Report Type: 
  Country: None (occurrence: None)
  Receive Date: 20091125
  Receipt Date: 20091117
  Transmission Date: 20100525
  Serious: Yes (Death, Hospitalization, Other)
  Sender: FDA-Public Use
  Company Number: PHHO2009BR02394

PATIENT
  Sex: Female
  Weight: 59.8 kg

DRUGS (1)
  1. AMN107 AMN+CAP [Suspect]
     Indication: CHRONIC MYELOID LEUKAEMIA
     Dosage: 400 MG, BID
     Route: 048
     Dates: start: 20090206, end: 20090529

REACTIONS (6)
  - BLAST CRISIS IN MYELOGENOUS LEUKAEMIA [None]
  - CARDIO-RESPIRATORY ARREST [None]
  - CHRONIC MYELOID LEUKAEMIA [None]
  - DRUG INEFFECTIVE [None]
  - NEUTROPENIA [None]
  - NEUTROPHIL COUNT DECREASED [None]
